FAERS Safety Report 4650532-6 (Version None)
Quarter: 2005Q2

REPORT INFORMATION
  Report Type: 
  Country: None (occurrence: None)
  Receive Date: 20050428
  Receipt Date: 20050419
  Transmission Date: 20051028
  Serious: No
  Sender: FDA-Public Use
  Company Number: 2005UW6257

PATIENT
  Age: 9 Year
  Sex: Male

DRUGS (8)
  1. SEROQUEL [Suspect]
     Dosage: 600 MG PO
     Route: 048
  2. SEROQUEL [Suspect]
     Dosage: 400 MG PO
     Route: 048
  3. RISPERDAL [Suspect]
     Dosage: 6 MG
  4. DEPAKOTE [Suspect]
  5. WELLBUTRIN [Suspect]
  6. STRATTERA [Suspect]
  7. TRILEPTAL [Suspect]
  8. TRILEPTAL [Suspect]
     Dosage: DECREASING

REACTIONS (1)
  - DYSTONIA [None]
